FAERS Safety Report 23379967 (Version 1)
Quarter: 2024Q1

REPORT INFORMATION
  Report Type: Spontaneous
  Country: CZ (occurrence: CZ)
  Receive Date: 20240109
  Receipt Date: 20240109
  Transmission Date: 20240410
  Serious: Yes (Hospitalization)
  Sender: FDA-Public Use
  Company Number: None

PATIENT
  Age: 17 Year
  Sex: Male

DRUGS (3)
  1. CODEINE [Suspect]
     Active Substance: CODEINE
     Indication: Product used for unknown indication
     Dosage: UNK
     Route: 065
  2. ACETAMINOPHEN [Suspect]
     Active Substance: ACETAMINOPHEN
     Indication: Product used for unknown indication
     Dosage: 8 DF (FILM-COATED GRANULES)
     Route: 048
  3. BROMAZEPAM [Concomitant]
     Active Substance: BROMAZEPAM
     Indication: Product used for unknown indication
     Dosage: UNK
     Route: 065

REACTIONS (3)
  - Suicide attempt [Unknown]
  - Intentional overdose [Unknown]
  - Somnolence [Unknown]

NARRATIVE: CASE EVENT DATE: 20211121
